FAERS Safety Report 25141593 (Version 3)
Quarter: 2025Q3

REPORT INFORMATION
  Report Type: Spontaneous
  Country: US (occurrence: US)
  Receive Date: 20250331
  Receipt Date: 20250710
  Transmission Date: 20251021
  Serious: No
  Sender: SANOFI AVENTIS
  Company Number: US-SA-2025SA088932

PATIENT
  Age: 33 Year
  Sex: Male

DRUGS (1)
  1. DUPIXENT [Suspect]
     Active Substance: DUPILUMAB
     Indication: Dermatitis atopic
     Dosage: 300 MG, QOW
     Route: 058
     Dates: start: 20241004

REACTIONS (5)
  - Asthma [Unknown]
  - Rebound effect [Unknown]
  - Product dose omission in error [Unknown]
  - Rebound eczema [Unknown]
  - Injection site pain [Recovered/Resolved]
